FAERS Safety Report 7748137-3 (Version None)
Quarter: 2011Q3

REPORT INFORMATION
  Report Type: 
  Country: None (occurrence: None)
  Receive Date: 20110913
  Receipt Date: 20110902
  Transmission Date: 20111222
  Serious: Yes (Other)
  Sender: FDA-Public Use
  Company Number: MX-BAXTER-2011BH028764

PATIENT
  Age: 59 Year
  Sex: Male
  Weight: 80 kg

DRUGS (2)
  1. DIANEAL [Suspect]
     Route: 033
  2. DIANEAL [Suspect]
     Indication: PERITONEAL DIALYSIS
     Route: 033

REACTIONS (1)
  - SWELLING [None]
